FAERS Safety Report 22286984 (Version 2)
Quarter: 2023Q2

REPORT INFORMATION
  Report Type: Spontaneous
  Country: PT (occurrence: PT)
  Receive Date: 20230505
  Receipt Date: 20230527
  Transmission Date: 20230722
  Serious: Yes (Life-Threatening, Hospitalization)
  Sender: FDA-Public Use
  Company Number: None

PATIENT
  Age: 60 Year
  Sex: Female
  Weight: 74.8 kg

DRUGS (6)
  1. FILGRASTIM [Suspect]
     Active Substance: FILGRASTIM
     Indication: Product used for unknown indication
     Dosage: UNK (1X DIA DIA 3 AO DIA 10 DO CICLO DE QUIMIOTERAPIA 1 DEGREE CICLO)
     Route: 058
     Dates: start: 20230309, end: 20230316
  2. CYCLOPHOSPHAMIDE [Suspect]
     Active Substance: CYCLOPHOSPHAMIDE
     Indication: Breast cancer
     Dosage: 1056 MG (1X DIA 1 DEGREE CICLO QUIMIOTERAPIA AC DOSE DENSE)
     Route: 042
     Dates: start: 20230307, end: 20230307
  3. DOXORUBICIN [Suspect]
     Active Substance: DOXORUBICIN
     Indication: Breast cancer
     Dosage: 105.6 MG, CYCLIC (1X DIA 1 DEGREE CICLO QUIMIOTERAPIA AC DOSE DENSE)
     Route: 042
     Dates: start: 20230307, end: 20230307
  4. CLAMED [Concomitant]
     Indication: Product used for unknown indication
     Dosage: UNK
     Route: 048
  5. BISOPROLOL FUMARATE [Concomitant]
     Active Substance: BISOPROLOL FUMARATE
     Indication: Product used for unknown indication
     Dosage: UNK
     Route: 048
  6. ALPRAZOLAM [Concomitant]
     Active Substance: ALPRAZOLAM
     Indication: Product used for unknown indication
     Dosage: UNK
     Route: 048

REACTIONS (3)
  - Neutropenia [Recovered/Resolved]
  - Thrombocytopenia [Recovered/Resolved]
  - Sepsis [Recovered/Resolved]

NARRATIVE: CASE EVENT DATE: 20230318
